FAERS Safety Report 10812056 (Version 1)
Quarter: 2015Q1

REPORT INFORMATION
  Report Type: Spontaneous
  Country: US (occurrence: None)
  Receive Date: 20150213
  Receipt Date: 20150213
  Transmission Date: 20150721
  Serious: No
  Sender: FDA-Public Use
  Company Number: None

PATIENT
  Age: 23 Year
  Sex: Female
  Weight: 77.11 kg

DRUGS (2)
  1. VIIBRYD [Suspect]
     Active Substance: VILAZODONE HYDROCHLORIDE
     Indication: DEPRESSION
     Dosage: TAKE 1 PILL ONCE DAILY TAKEN BY MOUTH
     Route: 048
     Dates: start: 20141001, end: 20150101
  2. VIIBRYD [Suspect]
     Active Substance: VILAZODONE HYDROCHLORIDE
     Indication: GENERALISED ANXIETY DISORDER
     Dosage: TAKE 1 PILL ONCE DAILY TAKEN BY MOUTH
     Route: 048
     Dates: start: 20141001, end: 20150101

REACTIONS (1)
  - Pruritus [None]

NARRATIVE: CASE EVENT DATE: 20141001
